FAERS Safety Report 9592262 (Version 6)
Quarter: 2014Q2

REPORT INFORMATION
  Report Type: Report from Study
  Country: FR (occurrence: FR)
  Receive Date: 20131004
  Receipt Date: 20140407
  Transmission Date: 20141212
  Serious: Yes (Hospitalization)
  Sender: FDA-Public Use
  Company Number: FR-BRISTOL-MYERS SQUIBB COMPANY-19493410

PATIENT
  Age: 52 Year
  Sex: Male

DRUGS (1)
  1. CETUXIMAB [Suspect]
     Indication: SQUAMOUS CELL CARCINOMA OF HEAD AND NECK
     Dosage: 407.5MG?RECENT INF:16FEB12
     Route: 042
     Dates: start: 20120209

REACTIONS (2)
  - Mucosal inflammation [Recovering/Resolving]
  - Dysphagia [Recovering/Resolving]
